FAERS Safety Report 7724316-6 (Version None)
Quarter: 2011Q3

REPORT INFORMATION
  Report Type: 
  Country: None (occurrence: None)
  Receive Date: 20110901
  Receipt Date: 20110818
  Transmission Date: 20111222
  Serious: Yes (Hospitalization, Other)
  Sender: FDA-Public Use
  Company Number: BR-GENENTECH-317201

PATIENT
  Age: 82 Year
  Sex: Male

DRUGS (3)
  1. LUCENTIS [Suspect]
     Indication: MACULAR DEGENERATION
     Dosage: 1 DF, 1/MONTH
     Route: 031
     Dates: start: 20090723
  2. METFORMIN [Concomitant]
     Indication: DIABETES MELLITUS
  3. TIMOLOL MALEATE [Concomitant]
     Indication: GLAUCOMA
     Dosage: 5 ML, UNK

REACTIONS (4)
  - GAIT DISTURBANCE [None]
  - VISUAL ACUITY REDUCED [None]
  - ROAD TRAFFIC ACCIDENT [None]
  - LOWER LIMB FRACTURE [None]
